FAERS Safety Report 8959710 (Version 2)
Quarter: 2012Q4

REPORT INFORMATION
  Report Type: 
  Country: US (occurrence: US)
  Receive Date: 20121212
  Receipt Date: 20121224
  Transmission Date: 20130627
  Serious: Yes (Hospitalization, Other)
  Sender: FDA-Public Use
  Company Number: US-PURDUE-USA-2012-0096654

PATIENT
  Sex: Female

DRUGS (2)
  1. OXYCONTIN (NDA 22-272) [Suspect]
     Indication: ANALGESIC THERAPY
     Dosage: 80 mg, UNK
     Route: 048
  2. OXYCONTIN (NDA 22-272) [Suspect]
     Dosage: 60 mg, UNK
     Route: 048

REACTIONS (17)
  - Complex regional pain syndrome [Unknown]
  - Lung infiltration [Unknown]
  - Rheumatoid arthritis [Unknown]
  - Sjogren^s syndrome [Unknown]
  - Cellulitis [Unknown]
  - Blister [Unknown]
  - Burning sensation [Unknown]
  - Erythema [Unknown]
  - Oedema peripheral [Unknown]
  - Blood glucose decreased [Unknown]
  - Pyrexia [Unknown]
  - Skin discolouration [Unknown]
  - Loss of consciousness [Unknown]
  - Amnesia [Unknown]
  - Drug ineffective [Unknown]
  - Product colour issue [Unknown]
  - Inadequate analgesia [Unknown]
